FAERS Safety Report 5693853-0 (Version None)
Quarter: 2008Q2

REPORT INFORMATION
  Report Type: 
  Country: None (occurrence: None)
  Receive Date: 20080403
  Receipt Date: 20080326
  Transmission Date: 20081010
  Serious: Yes (Other)
  Sender: FDA-Public Use
  Company Number: US-PFIZER INC-2008025393

PATIENT
  Sex: Male
  Weight: 77.272 kg

DRUGS (5)
  1. VIAGRA [Suspect]
     Indication: ERECTILE DYSFUNCTION
     Dates: start: 20080201, end: 20080201
  2. ATIVAN [Concomitant]
  3. ADVAIR HFA [Concomitant]
  4. ATENOLOL [Concomitant]
  5. LISINOPRIL [Concomitant]

REACTIONS (3)
  - DRUG EFFECT DECREASED [None]
  - EJACULATION FAILURE [None]
  - FEELING ABNORMAL [None]
